FAERS Safety Report 4918562-4 (Version None)
Quarter: 2006Q1

REPORT INFORMATION
  Report Type: 
  Country: None (occurrence: None)
  Receive Date: 20060217
  Receipt Date: 20060217
  Transmission Date: 20060701
  Serious: Yes (Death)
  Sender: FDA-Public Use
  Company Number: None

PATIENT
  Age: 40 Year
  Sex: Female
  Weight: 48.7 kg

DRUGS (1)
  1. ENBREL [Suspect]
     Indication: RHEUMATOID ARTHRITIS
     Dosage: 25 MG INJECTION ONCE WEEKLY SQ
     Route: 058
     Dates: start: 20030101, end: 20051130

REACTIONS (12)
  - ABASIA [None]
  - ACTIVITIES OF DAILY LIVING IMPAIRED [None]
  - AREFLEXIA [None]
  - ASTHENIA [None]
  - BONE MARROW FAILURE [None]
  - CEREBROVASCULAR ACCIDENT [None]
  - FEBRILE NEUTROPENIA [None]
  - GRAND MAL CONVULSION [None]
  - HYPOTONIA [None]
  - MUSCULAR WEAKNESS [None]
  - RESPIRATORY FAILURE [None]
  - URINARY TRACT INFECTION [None]
